FAERS Safety Report 8005178-9 (Version None)
Quarter: 2011Q4

REPORT INFORMATION
  Report Type: 
  Country: None (occurrence: None)
  Receive Date: 20111223
  Receipt Date: 20111216
  Transmission Date: 20120403
  Serious: Yes (Death, Hospitalization)
  Sender: FDA-Public Use
  Company Number: PHHY2010US33975

PATIENT
  Sex: Male
  Weight: 81.8 kg

DRUGS (2)
  1. EXJADE [Suspect]
     Dosage: 500 MG, QD
     Route: 048
     Dates: end: 20110901
  2. TORISEL [Concomitant]
     Dosage: UNK

REACTIONS (6)
  - MUSCULOSKELETAL CHEST PAIN [None]
  - ANAEMIA [None]
  - RENAL FAILURE [None]
  - PROSTATE CANCER METASTATIC [None]
  - BACK PAIN [None]
  - PAIN [None]
